FAERS Safety Report 8541823-7 (Version None)
Quarter: 2012Q3

REPORT INFORMATION
  Report Type: 
  Country: None (occurrence: None)
  Receive Date: 20120726
  Receipt Date: 20110824
  Transmission Date: 20120928
  Serious: No
  Sender: FDA-Public Use
  Company Number: US-ASTRAZENECA-2011SE51126

PATIENT
  Sex: Female

DRUGS (1)
  1. SEROQUEL [Suspect]
     Indication: DEPRESSION
     Route: 048

REACTIONS (9)
  - HUNGER [None]
  - FEELING DRUNK [None]
  - DIZZINESS [None]
  - INSOMNIA [None]
  - MALAISE [None]
  - SOMNOLENCE [None]
  - NAUSEA [None]
  - DRUG DOSE OMISSION [None]
  - RESTLESS LEGS SYNDROME [None]
